FAERS Safety Report 9975232 (Version 1)
Quarter: 2014Q1

REPORT INFORMATION
  Report Type: Spontaneous
  Country: US (occurrence: US)
  Receive Date: 20140306
  Receipt Date: 20140306
  Transmission Date: 20141002
  Serious: No
  Sender: FDA-Public Use
  Company Number: US-ABBVIE-13P-163-1162408-00

PATIENT
  Age: 63 Year
  Sex: Male
  Weight: 135.29 kg

DRUGS (13)
  1. HUMIRA [Suspect]
     Indication: PSORIASIS
     Dosage: ONE TIME DOSE
     Route: 058
     Dates: start: 201308, end: 201308
  2. HUMIRA [Suspect]
     Route: 058
     Dates: start: 201308, end: 20131023
  3. HUMIRA [Suspect]
     Route: 058
     Dates: start: 20131023
  4. CLOBETASOL PROPIONATE [Concomitant]
     Indication: PSORIASIS
  5. DOVONEX [Concomitant]
     Indication: PSORIASIS
  6. BENICAR [Concomitant]
     Indication: HYPERTENSION
  7. POTASSIUM CHLORIDE [Concomitant]
     Indication: PRODUCT USED FOR UNKNOWN INDICATION
  8. ASPIRIN [Concomitant]
     Indication: PRODUCT USED FOR UNKNOWN INDICATION
  9. MULTIVITAMIN [Concomitant]
     Indication: VITAMIN SUPPLEMENTATION
  10. VITAMIN B-12 [Concomitant]
     Indication: PRODUCT USED FOR UNKNOWN INDICATION
  11. FUROSEMIDE [Concomitant]
     Indication: HYPERTENSION
  12. CLONIDINE [Concomitant]
     Indication: PRODUCT USED FOR UNKNOWN INDICATION
  13. VERAPAMIL [Concomitant]
     Indication: HYPERTENSION

REACTIONS (1)
  - Drug effect decreased [Not Recovered/Not Resolved]
